FAERS Safety Report 9136161 (Version 1)
Quarter: 2013Q1

REPORT INFORMATION
  Report Type: Spontaneous
  Country: US (occurrence: US)
  Receive Date: 20130304
  Receipt Date: 20130304
  Transmission Date: 20140127
  Serious: No
  Sender: FDA-Public Use
  Company Number: US-ABBOTT-12P-163-0985559-00

PATIENT
  Age: 70 Year
  Sex: Male
  Weight: 93.07 kg

DRUGS (5)
  1. ANDROGEL [Suspect]
     Indication: BLOOD TESTOSTERONE DECREASED
     Dosage: THREE PUMP ACTUATIONS PER DAY
     Dates: start: 20120911
  2. ANDROGEL [Suspect]
     Dosage: 4 PUMP ACTUATIONS PER DAY.
     Dates: start: 20120827, end: 20120910
  3. FLECAINIDE [Concomitant]
     Indication: ARRHYTHMIA
  4. SIMVASTATIN [Concomitant]
     Indication: BLOOD CHOLESTEROL INCREASED
  5. WARFARIN [Concomitant]
     Indication: ANTICOAGULANT THERAPY

REACTIONS (4)
  - Constipation [Not Recovered/Not Resolved]
  - Insomnia [Not Recovered/Not Resolved]
  - Nipple pain [Not Recovered/Not Resolved]
  - International normalised ratio increased [Not Recovered/Not Resolved]
